FAERS Safety Report 18852715 (Version 1)
Quarter: 2021Q1

REPORT INFORMATION
  Report Type: Spontaneous
  Country: US (occurrence: US)
  Receive Date: 20210205
  Receipt Date: 20210205
  Transmission Date: 20210420
  Serious: Yes (Other)
  Sender: FDA-Public Use
  Company Number: US-BAYER-2021-044265

PATIENT
  Age: 19 Year
  Sex: Female

DRUGS (1)
  1. KYLEENA [Suspect]
     Active Substance: LEVONORGESTREL
     Dosage: 17.5 ?G PER DAY, CONTINUOUSLY
     Route: 015
     Dates: start: 201905

REACTIONS (6)
  - Depression [None]
  - Pelvic inflammatory disease [None]
  - Anxiety [None]
  - Polymenorrhoea [None]
  - Dysmenorrhoea [None]
  - Abdominal pain lower [None]
